FAERS Safety Report 6246044-9 (Version None)
Quarter: 2009Q2

REPORT INFORMATION
  Report Type: 
  Country: None (occurrence: None)
  Receive Date: 20090626
  Receipt Date: 20081216
  Transmission Date: 20091009
  Serious: No
  Sender: FDA-Public Use
  Company Number: A0760731A

PATIENT
  Age: 53 Year
  Sex: Female

DRUGS (4)
  1. IMITREX [Suspect]
     Indication: MIGRAINE
     Dosage: 100MG AS REQUIRED
     Route: 048
     Dates: end: 20080101
  2. SUMATRIPTAN SUCCINATE [Suspect]
     Indication: MIGRAINE
     Dosage: 100MG AS REQUIRED
     Route: 048
     Dates: start: 20081215, end: 20081215
  3. EXCEDRIN [Concomitant]
  4. FOSAMAX [Concomitant]

REACTIONS (3)
  - DRUG INEFFECTIVE [None]
  - MUSCLE TIGHTNESS [None]
  - PARAESTHESIA [None]
